FAERS Safety Report 4909720-3 (Version None)
Quarter: 2006Q1

REPORT INFORMATION
  Report Type: 
  Country: None (occurrence: None)
  Receive Date: 20060208
  Receipt Date: 20060126
  Transmission Date: 20060701
  Serious: Yes (Hospitalization, Other)
  Sender: FDA-Public Use
  Company Number: 2006013757

PATIENT
  Sex: Male
  Weight: 86.1834 kg

DRUGS (9)
  1. NEURONTIN [Suspect]
     Indication: NEUROPATHY PERIPHERAL
     Dosage: 300 MG (300 MG, 1 IN 1 D), ORAL
     Route: 048
  2. CARBAMAZEPINE [Suspect]
     Indication: NEUROPATHY PERIPHERAL
  3. AVANDIA [Concomitant]
  4. AMBIEN [Concomitant]
  5. ASPIRIN [Concomitant]
  6. SYNTHROID [Concomitant]
  7. TEGRETOL [Suspect]
     Indication: NEUROPATHY PERIPHERAL
     Dosage: (4 IN 1 D),
  8. CYMBALTA [Suspect]
     Indication: NEUROPATHY PERIPHERAL
     Dates: end: 20050901
  9. TRILEPTAL [Suspect]
     Indication: NEUROPATHY PERIPHERAL

REACTIONS (8)
  - ACTIVITIES OF DAILY LIVING IMPAIRED [None]
  - AMNESIA [None]
  - BLOOD URIC ACID INCREASED [None]
  - DRUG EFFECT DECREASED [None]
  - MOVEMENT DISORDER [None]
  - NERVOUS SYSTEM DISORDER [None]
  - TOOTH DISORDER [None]
  - TREMOR [None]
